FAERS Safety Report 6801048-X (Version None)
Quarter: 2010Q2

REPORT INFORMATION
  Report Type: 
  Country: None (occurrence: None)
  Receive Date: 20100629
  Receipt Date: 20100616
  Transmission Date: 20101027
  Serious: Yes (Other)
  Sender: FDA-Public Use
  Company Number: US-ELI_LILLY_AND_COMPANY-US201006005021

PATIENT
  Sex: Male

DRUGS (2)
  1. ZYPREXA [Suspect]
     Dosage: 5 MG, 2/D
     Route: 065
     Dates: start: 20100528
  2. CLONIDINE [Concomitant]

REACTIONS (2)
  - DRUG EFFECT INCREASED [None]
  - HOSPICE CARE [None]
